FAERS Safety Report 4607061-5 (Version None)
Quarter: 2005Q1

REPORT INFORMATION
  Report Type: 
  Country: None (occurrence: None)
  Receive Date: 20050314
  Receipt Date: 20050302
  Transmission Date: 20050727
  Serious: Yes (Death, Hospitalization)
  Sender: FDA-Public Use
  Company Number: US-BRISTOL-MYERS SQUIBB COMPANY-12884631

PATIENT
  Age: 43 Year
  Sex: Male

DRUGS (6)
  1. BLEOMYCIN SULFATE [Suspect]
     Indication: TESTIS CANCER
  2. INTRON A [Suspect]
     Indication: METASTATIC RENAL CELL CARCINOMA
     Dosage: MIU/M2
     Route: 058
     Dates: start: 19980203
  3. PROLEUKIN [Suspect]
     Indication: METASTATIC RENAL CELL CARCINOMA
     Dosage: 5 MIU/M2: EVERY 8 HR 3-FEB; D 2-5 4-FEB TO 7-FEB; 5X/WEEK FROM 08-FEB
     Route: 058
     Dates: start: 19980203
  4. ACETAMINOPHEN [Concomitant]
     Indication: PREMEDICATION
     Dosage: 500-650 MG
     Route: 048
  5. DARVOCET-N 100 [Concomitant]
     Indication: BACK PAIN
  6. DURAGESIC-100 [Concomitant]
     Indication: BACK PAIN

REACTIONS (3)
  - ACUTE RESPIRATORY DISTRESS SYNDROME [None]
  - ARRHYTHMIA SUPRAVENTRICULAR [None]
  - MALIGNANT NEOPLASM PROGRESSION [None]
